FAERS Safety Report 7026879-5 (Version None)
Quarter: 2010Q4

REPORT INFORMATION
  Report Type: 
  Country: None (occurrence: None)
  Receive Date: 20101004
  Receipt Date: 20100929
  Transmission Date: 20110411
  Serious: Yes (Other)
  Sender: FDA-Public Use
  Company Number: A0836496A

PATIENT
  Age: 51 Year
  Sex: Female
  Weight: 113.6 kg

DRUGS (9)
  1. AVANDIA [Suspect]
     Dosage: 8MG PER DAY
     Route: 048
     Dates: start: 20050101, end: 20070101
  2. INSULIN [Concomitant]
  3. BENAZEPRIL HYDROCHLORIDE [Concomitant]
  4. METFORMIN [Concomitant]
  5. FLEXERIL [Concomitant]
  6. LORAZEPAM [Concomitant]
  7. FLUOXETINE [Concomitant]
  8. PROTONIX [Concomitant]
  9. METOPROLOL TARTRATE [Concomitant]

REACTIONS (3)
  - CARDIAC DISORDER [None]
  - CARDIAC FAILURE CONGESTIVE [None]
  - OEDEMA [None]
